FAERS Safety Report 23695504 (Version 2)
Quarter: 2024Q3

REPORT INFORMATION
  Report Type: Spontaneous
  Country: US (occurrence: US)
  Receive Date: 20240402
  Receipt Date: 20240913
  Transmission Date: 20241017
  Serious: Yes (Other)
  Sender: BRISTOL MYERS SQUIBB
  Company Number: US-BRISTOL-MYERS SQUIBB COMPANY-2024-047074

PATIENT
  Age: 72 Year
  Sex: Female

DRUGS (2)
  1. LENALIDOMIDE [Suspect]
     Active Substance: LENALIDOMIDE
     Indication: Plasma cell myeloma
     Dosage: TAKE 1 CAPSULE BY MOUTH EVERY DAY FOR 21 DAYS AND THEN 1 WEEK OFF.
     Route: 048
  2. LENALIDOMIDE [Suspect]
     Active Substance: LENALIDOMIDE
     Dosage: TAKE 1 CAPSULE BY MOUTH EVERY DAY FOR 21 DAYS AND THEN 1 WEEK OFF.
     Route: 048

REACTIONS (11)
  - Thrombosis [Unknown]
  - Skin hyperpigmentation [Unknown]
  - Rash pruritic [Unknown]
  - Viral infection [Unknown]
  - Muscle spasms [Unknown]
  - Fatigue [Unknown]
  - White blood cell count decreased [Recovering/Resolving]
  - Product dose omission issue [Unknown]
  - Diarrhoea [Unknown]
  - Body temperature increased [Unknown]
  - Inappropriate schedule of product administration [Unknown]

NARRATIVE: CASE EVENT DATE: 20240101
